FAERS Safety Report 25946006 (Version 2)
Quarter: 2025Q4

REPORT INFORMATION
  Report Type: Spontaneous
  Country: JP (occurrence: JP)
  Receive Date: 20251021
  Receipt Date: 20251218
  Transmission Date: 20260117
  Serious: Yes (Hospitalization)
  Sender: MERCK SHARP & DOHME LLC
  Company Number: JP-009507513-2341450

PATIENT
  Age: 6 Decade
  Sex: Female

DRUGS (4)
  1. KEYTRUDA [Suspect]
     Active Substance: PEMBROLIZUMAB
     Indication: Cervix carcinoma
     Dosage: 4 COURSES
     Route: 041
  2. CARBOPLATIN [Suspect]
     Active Substance: CARBOPLATIN
  3. PACLITAXEL [Concomitant]
     Active Substance: PACLITAXEL
  4. BEVACIZUMAB [Suspect]
     Active Substance: BEVACIZUMAB

REACTIONS (2)
  - Acute kidney injury [Recovering/Resolving]
  - Proteinuria [Unknown]
